FAERS Safety Report 5236781-7 (Version None)
Quarter: 2007Q1

REPORT INFORMATION
  Report Type: 
  Country: None (occurrence: None)
  Receive Date: 20061208
  Receipt Date: 20050201
  Transmission Date: 20070707
  Serious: Yes (Other)
  Sender: FDA-Public Use
  Company Number: 2004UW23792

PATIENT
  Age: 81 Year
  Sex: Female
  Weight: 58.967 kg

DRUGS (5)
  1. CRESTOR [Suspect]
     Indication: BLOOD CHOLESTEROL INCREASED
     Dosage: 10 MG DAILY PO
     Route: 048
     Dates: start: 20030101, end: 20041116
  2. DIOVAN [Concomitant]
  3. CATAPRES [Concomitant]
  4. VERELAN [Concomitant]
  5. HYDRODIURIL [Concomitant]

REACTIONS (8)
  - ARTHRALGIA [None]
  - MALAISE [None]
  - MYALGIA [None]
  - NAUSEA [None]
  - PALPITATIONS [None]
  - TREMOR [None]
  - VERTIGO [None]
  - VOMITING [None]
